FAERS Safety Report 12807491 (Version 1)
Quarter: 2016Q4

REPORT INFORMATION
  Report Type: Report from Study
  Country: KR (occurrence: KR)
  Receive Date: 20161004
  Receipt Date: 20161004
  Transmission Date: 20170207
  Serious: Yes (Other)
  Sender: FDA-Public Use
  Company Number: KR-B.I. PHARMACEUTICALS,INC./RIDGEFIELD-2016-BI-63539RK

PATIENT
  Age: 73 Year
  Sex: Male
  Weight: 78.9 kg

DRUGS (7)
  1. DICHLOZID [Concomitant]
     Indication: HYPERTENSION
     Route: 065
     Dates: start: 2015
  2. GILOTRIF [Suspect]
     Active Substance: AFATINIB
     Indication: NON-SMALL CELL LUNG CANCER
     Route: 065
     Dates: start: 20150917, end: 20160427
  3. GILOTRIF [Suspect]
     Active Substance: AFATINIB
     Route: 065
     Dates: start: 20160428, end: 20160608
  4. NORVASC [Concomitant]
     Active Substance: AMLODIPINE BESYLATE
     Indication: HYPERTENSION
     Route: 065
     Dates: start: 2013
  5. LACTICARE ZEMAGIS [Concomitant]
     Indication: RASH
     Dosage: FORMULATION: LOTION; STRENGTH: 0.25%
     Route: 065
     Dates: start: 20151008, end: 20151223
  6. LACTICARE ZEMAGIS [Concomitant]
     Indication: PARONYCHIA
     Dosage: FORMULATION: LOTION; STRENGTH: 0.25%
     Route: 065
     Dates: start: 20160428, end: 20160608
  7. PARAMACET [Concomitant]
     Active Substance: ACETAMINOPHEN\TRAMADOL
     Indication: PAIN
     Route: 065
     Dates: start: 20150911

REACTIONS (1)
  - Malignant neoplasm progression [Not Recovered/Not Resolved]

NARRATIVE: CASE EVENT DATE: 20160602
